FAERS Safety Report 7737200-9 (Version None)
Quarter: 2011Q3

REPORT INFORMATION
  Report Type: 
  Country: None (occurrence: None)
  Receive Date: 20110902
  Receipt Date: 20110822
  Transmission Date: 20111222
  Serious: Yes (Other)
  Sender: FDA-Public Use
  Company Number: 2011MA012359

PATIENT
  Age: 38 Year
  Sex: Male

DRUGS (3)
  1. ISONIAZID [Suspect]
  2. RIFAMPIN [Suspect]
  3. PYRAZINAMIDE [Suspect]

REACTIONS (2)
  - HEPATITIS FULMINANT [None]
  - ACUTE HEPATIC FAILURE [None]
